FAERS Safety Report 5487457-2 (Version None)
Quarter: 2007Q4

REPORT INFORMATION
  Report Type: 
  Country: None (occurrence: None)
  Receive Date: 20071015
  Receipt Date: 20071002
  Transmission Date: 20080405
  Serious: Yes (Life-Threatening, Hospitalization)
  Sender: FDA-Public Use
  Company Number: GXKR2007GB07491

PATIENT
  Age: 72 Year
  Sex: Female

DRUGS (11)
  1. ITRACONAZOLE [Suspect]
     Dosage: 140 MG, BID, ORAL
     Route: 048
     Dates: start: 20070808
  2. ISOPTIN SR [Suspect]
     Dosage: 120 MG, QD, ORAL
     Route: 048
     Dates: start: 20070814, end: 20070817
  3. ACYCLOVIR [Concomitant]
  4. ALLOPURINOL [Concomitant]
  5. ACETYLSALICYLIC ACID SRT [Concomitant]
  6. CISPLATIN [Concomitant]
  7. LANSOPRAZOLE [Concomitant]
  8. LEVOTHYROXINE SODIUM [Concomitant]
  9. MEROPENEM (MEROPENEM) [Concomitant]
  10. PRAMIPEXOLE DIHYDROCHLORIDE [Concomitant]
  11. RITUXIMAB (RITUXIMAB) [Concomitant]

REACTIONS (2)
  - BRADYCARDIA [None]
  - REPERFUSION ARRHYTHMIA [None]
